FAERS Safety Report 13730061 (Version 1)
Quarter: 2017Q3

REPORT INFORMATION
  Report Type: Spontaneous
  Country: ES (occurrence: ES)
  Receive Date: 20170707
  Receipt Date: 20170707
  Transmission Date: 20171127
  Serious: Yes (Life-Threatening, Hospitalization)
  Sender: FDA-Public Use
  Company Number: ES-MYLANLABS-2017M1040220

PATIENT

DRUGS (1)
  1. HYDROXYCHLOROQUINE [Suspect]
     Active Substance: HYDROXYCHLOROQUINE
     Indication: PRODUCT USED FOR UNKNOWN INDICATION
     Dosage: 42 TABLETS OF 200 MG
     Route: 065

REACTIONS (7)
  - Overdose [Recovering/Resolving]
  - Suicide attempt [Recovering/Resolving]
  - Ventricular tachycardia [Recovering/Resolving]
  - Hypokalaemia [Recovering/Resolving]
  - Toxicity to various agents [Recovering/Resolving]
  - Cardio-respiratory arrest [Recovering/Resolving]
  - Pupils unequal [Recovering/Resolving]
